FAERS Safety Report 9242233 (Version 6)
Quarter: 2015Q2

REPORT INFORMATION
  Report Type: Spontaneous
  Country: US (occurrence: US)
  Receive Date: 20130419
  Receipt Date: 20150603
  Transmission Date: 20150821
  Serious: Yes (Death, Life-Threatening, Hospitalization, Other)
  Sender: FDA-Public Use
  Company Number: US-009507513-1304USA008231

PATIENT
  Sex: Male
  Weight: 145.13 kg

DRUGS (4)
  1. BAYER ASPIRIN [Concomitant]
     Active Substance: ASPIRIN
     Indication: COAGULOPATHY
     Dosage: UNK
     Dates: start: 2000
  2. JANUVIA [Suspect]
     Active Substance: SITAGLIPTIN PHOSPHATE
     Indication: TYPE 2 DIABETES MELLITUS
     Dosage: 100 MG, BID
     Route: 048
     Dates: start: 20100622, end: 20101128
  3. VITAMINS (UNSPECIFIED) [Concomitant]
     Active Substance: VITAMINS
     Dosage: UNK
     Dates: start: 2000, end: 2012
  4. JANUVIA [Suspect]
     Active Substance: SITAGLIPTIN PHOSPHATE
     Dosage: 100 MG, QD
     Route: 048
     Dates: start: 20071010

REACTIONS (31)
  - Pancreatitis chronic [Not Recovered/Not Resolved]
  - Hernia repair [Unknown]
  - Pancreaticoduodenectomy [Unknown]
  - Bile duct stenosis [Unknown]
  - Bile duct stent insertion [Unknown]
  - Migraine [Unknown]
  - Anaemia postoperative [Unknown]
  - Knee arthroplasty [Unknown]
  - Pancreatitis acute [Unknown]
  - Diet noncompliance [Unknown]
  - Cardiovascular disorder [Unknown]
  - Anaemia of chronic disease [Not Recovered/Not Resolved]
  - Back pain [Not Recovered/Not Resolved]
  - Insomnia [Unknown]
  - Glaucoma [Unknown]
  - Cholelithiasis [Recovered/Resolved]
  - Death [Fatal]
  - Urine flow decreased [Unknown]
  - Asthma [Unknown]
  - Biopsy pancreas [Unknown]
  - Encephalopathy [Recovering/Resolving]
  - Cholecystitis chronic [Recovered/Resolved]
  - Intervertebral disc degeneration [Unknown]
  - Cough [Unknown]
  - Insulin-requiring type 2 diabetes mellitus [Unknown]
  - Arthralgia [Unknown]
  - Adenocarcinoma pancreas [Unknown]
  - Skin cancer [Unknown]
  - Diabetes mellitus inadequate control [Unknown]
  - Gastrooesophageal reflux disease [Unknown]
  - Constipation [Not Recovered/Not Resolved]

NARRATIVE: CASE EVENT DATE: 201010
